FAERS Safety Report 23963169 (Version 1)
Quarter: 2024Q2

REPORT INFORMATION
  Report Type: Spontaneous
  Country: US (occurrence: US)
  Receive Date: 20240611
  Receipt Date: 20240611
  Transmission Date: 20240716
  Serious: No
  Sender: FDA-Public Use
  Company Number: US-IPSEN Group, Research and Development-2024-11246

PATIENT
  Sex: Female

DRUGS (4)
  1. DYSPORT [Suspect]
     Active Substance: ABOBOTULINUMTOXINA
     Indication: Hereditary spastic paraplegia
     Dosage: EVERY 90 DAYS
     Route: 030
     Dates: start: 20220812, end: 20220812
  2. ADVILCAP [Concomitant]
  3. DALFAMPRIDIN [Concomitant]
  4. OCREVUS [Concomitant]
     Active Substance: OCRELIZUMAB
     Dosage: INJ 300/1 OML

REACTIONS (2)
  - Asthenia [Unknown]
  - Product dose omission issue [Unknown]
